FAERS Safety Report 20908271 (Version 1)
Quarter: 2022Q2

REPORT INFORMATION
  Report Type: Report from Study
  Country: DE (occurrence: DE)
  Receive Date: 20220602
  Receipt Date: 20220602
  Transmission Date: 20220721
  Serious: Yes (Death, Other)
  Sender: FDA-Public Use
  Company Number: DE-BRISTOL-MYERS SQUIBB COMPANY-2022-051716

PATIENT
  Age: 80 Year
  Sex: Male

DRUGS (6)
  1. NIVOLUMAB [Suspect]
     Active Substance: NIVOLUMAB
     Indication: Malignant melanoma
     Dosage: DOSE 240 UNITS UNSPECIFIED?2 WEEKLY
     Route: 065
     Dates: start: 20190919, end: 20190919
  2. NIVOLUMAB [Suspect]
     Active Substance: NIVOLUMAB
     Indication: Lung neoplasm malignant
     Dosage: DOSE 240 UNITS UNSPECIFIED?2 WEEKLY
     Route: 065
     Dates: start: 20191002, end: 20191002
  3. NIVOLUMAB [Suspect]
     Active Substance: NIVOLUMAB
     Dosage: DOSE 240 UNITS UNSPECIFIED?2 WEEKLY
     Route: 065
     Dates: start: 20191022, end: 20191022
  4. NIVOLUMAB [Suspect]
     Active Substance: NIVOLUMAB
     Dosage: DOSE 240 UNITS UNSPECIFIED?2 WEEKLY
     Route: 065
     Dates: start: 20191105, end: 20191105
  5. NIVOLUMAB [Suspect]
     Active Substance: NIVOLUMAB
     Dosage: DOSE 240 UNITS UNSPECIFIED?2 WEEKLY
     Route: 065
     Dates: start: 20191119, end: 20191119
  6. NIVOLUMAB [Suspect]
     Active Substance: NIVOLUMAB
     Dosage: DOSE 240 UNITS UNSPECIFIED?2 WEEKLY
     Route: 065
     Dates: start: 20191203, end: 20191203

REACTIONS (1)
  - Death [Fatal]
